FAERS Safety Report 5608652-5 (Version None)
Quarter: 2008Q1

REPORT INFORMATION
  Report Type: 
  Country: None (occurrence: None)
  Receive Date: 20080130
  Receipt Date: 20080122
  Transmission Date: 20080703
  Serious: Yes (Hospitalization)
  Sender: FDA-Public Use
  Company Number: DK-PFIZER INC-2008008094

PATIENT
  Sex: Female
  Weight: 65 kg

DRUGS (1)
  1. VARENICLINE TABLETS [Suspect]
     Indication: SMOKING CESSATION THERAPY
     Route: 048
     Dates: start: 20070628, end: 20070807

REACTIONS (2)
  - BIPOLAR DISORDER [None]
  - JOB DISSATISFACTION [None]
